FAERS Safety Report 24603139 (Version 3)
Quarter: 2025Q4

REPORT INFORMATION
  Report Type: Report from Study
  Country: JP (occurrence: JP)
  Receive Date: 20241111
  Receipt Date: 20251009
  Transmission Date: 20260118
  Serious: Yes (Death)
  Sender: PFIZER
  Company Number: JP-PFIZER INC-PV202400103351

PATIENT
  Age: 75 Year
  Sex: Male
  Weight: 36.6 kg

DRUGS (15)
  1. ELRANATAMAB [Suspect]
     Active Substance: ELRANATAMAB
     Indication: Plasma cell myeloma
     Dosage: 12 MG, SINGLE
     Route: 058
     Dates: start: 20240724, end: 20240724
  2. ELRANATAMAB [Suspect]
     Active Substance: ELRANATAMAB
     Dosage: 32 MG, SINGLE
     Route: 058
     Dates: start: 20240731, end: 20240731
  3. ELRANATAMAB [Suspect]
     Active Substance: ELRANATAMAB
     Dosage: 76 MG, SINGLE
     Route: 058
     Dates: start: 20240813, end: 20240813
  4. ELRANATAMAB [Suspect]
     Active Substance: ELRANATAMAB
     Dosage: 76 MG, SINGLE
     Route: 058
     Dates: start: 20240820, end: 20240820
  5. ELRANATAMAB [Suspect]
     Active Substance: ELRANATAMAB
     Dosage: 76 MG, SINGLE
     Route: 058
     Dates: start: 20240827, end: 20240827
  6. ELRANATAMAB [Suspect]
     Active Substance: ELRANATAMAB
     Dosage: 76 MG, SINGLE
     Route: 058
     Dates: start: 20240903, end: 20240903
  7. ELRANATAMAB [Suspect]
     Active Substance: ELRANATAMAB
     Dosage: 76 MG, SINGLE
     Route: 058
     Dates: start: 20240910, end: 20240910
  8. SULFAMETHOXAZOLE\TRIMETHOPRIM [Concomitant]
     Active Substance: SULFAMETHOXAZOLE\TRIMETHOPRIM
     Indication: Antifungal prophylaxis
     Dosage: 2 DF, ALTERNATE DAY, ONCE A DAY
  9. DAFCLIR [Concomitant]
     Indication: Clostridium difficile colitis
     Dosage: 200 MG, 2X/DAY
  10. ACETAMINOPHEN\TRAMADOL HYDROCHLORIDE [Concomitant]
     Active Substance: ACETAMINOPHEN\TRAMADOL HYDROCHLORIDE
     Indication: Chest pain
     Dosage: 1 DF, 4X/DAY
  11. FOLIC ACID [Concomitant]
     Active Substance: FOLIC ACID
     Indication: Pernicious anaemia
     Dosage: 5 MG, 1X/DAY
  12. GANCICLOVIR [Concomitant]
     Active Substance: GANCICLOVIR
     Indication: Cytomegalovirus infection
     Dosage: 180 MG, 1X/DAY
  13. CRESEMBA [Concomitant]
     Active Substance: ISAVUCONAZONIUM SULFATE
     Indication: Bronchopulmonary aspergillosis
     Dosage: 200 MG, 1X/DAY
     Dates: start: 20240924
  14. MEROPENEM [Concomitant]
     Active Substance: MEROPENEM
     Indication: Pneumonia
     Dosage: 1 G, 2X/DAY
     Dates: start: 20241015
  15. LEVOFLOXACIN [Concomitant]
     Active Substance: LEVOFLOXACIN
     Indication: Pneumonia
     Dosage: 500 MG, 1X/DAY
     Dates: start: 20241007, end: 20241015

REACTIONS (4)
  - General physical health deterioration [Fatal]
  - Pneumonia bacterial [Fatal]
  - Hepatic function abnormal [Unknown]
  - Herpes zoster [Unknown]

NARRATIVE: CASE EVENT DATE: 20240805
